FAERS Safety Report 9808998 (Version 1)
Quarter: 2014Q1

REPORT INFORMATION
  Report Type: Spontaneous
  Country: US (occurrence: US)
  Receive Date: 20140110
  Receipt Date: 20140110
  Transmission Date: 20141002
  Serious: Yes (Hospitalization)
  Sender: FDA-Public Use
  Company Number: US-GLAXOSMITHKLINE-A1055595A

PATIENT
  Age: 75 Year
  Sex: Female

DRUGS (26)
  1. ADVAIR [Suspect]
     Indication: DYSPNOEA
     Dosage: 1PUFF TWICE PER DAY
     Route: 055
     Dates: start: 201202
  2. CIPRO [Suspect]
     Indication: KIDNEY INFECTION
     Route: 065
  3. ATARAX [Suspect]
     Indication: KIDNEY INFECTION
     Route: 065
  4. PATANASE [Concomitant]
  5. PATANOL [Concomitant]
  6. PRO-AIR [Concomitant]
  7. FLUTICASONE [Concomitant]
  8. PREDNISONE [Concomitant]
  9. LYRICA [Concomitant]
  10. PLAQUENIL [Concomitant]
  11. KLOR CON [Concomitant]
  12. METFORMIN HCL [Concomitant]
  13. SOTALOL [Concomitant]
  14. LASIX [Concomitant]
  15. COUMADIN [Concomitant]
  16. LOSARTAN [Concomitant]
  17. GLUCOTROL XL [Concomitant]
  18. NITROFURANTOIN MCR [Concomitant]
  19. SIMVASTATIN [Concomitant]
  20. SPIRIVA [Concomitant]
  21. LIDODERM [Concomitant]
  22. TYLENOL [Concomitant]
  23. LORTAB [Concomitant]
  24. FLEXERIL [Concomitant]
  25. MORPHINE [Concomitant]
  26. MUSCLE RELAXANT [Concomitant]

REACTIONS (4)
  - Kidney infection [Not Recovered/Not Resolved]
  - Adverse drug reaction [Unknown]
  - Drug hypersensitivity [Unknown]
  - Dyspnoea [Not Recovered/Not Resolved]
